FAERS Safety Report 19748555 (Version 1)
Quarter: 2021Q3

REPORT INFORMATION
  Report Type: Spontaneous
  Country: US (occurrence: US)
  Receive Date: 20210825
  Receipt Date: 20210825
  Transmission Date: 20211014
  Serious: No
  Sender: FDA-Public Use
  Company Number: None

PATIENT
  Age: 59 Year
  Sex: Female
  Weight: 101.25 kg

DRUGS (12)
  1. XIGDUO XR [Concomitant]
     Active Substance: DAPAGLIFLOZIN PROPANEDIOL\METFORMIN HYDROCHLORIDE
  2. CALCIUM [Concomitant]
     Active Substance: CALCIUM
  3. OMEPRAZOLE. [Concomitant]
     Active Substance: OMEPRAZOLE
  4. VITAMIN D [Concomitant]
     Active Substance: VITAMIN D NOS
  5. MAGNESIUM [Concomitant]
     Active Substance: MAGNESIUM
  6. APLENZIN [Suspect]
     Active Substance: BUPROPION HYDROBROMIDE
     Indication: MAJOR DEPRESSION
     Dosage: ?          QUANTITY:1 TABLET(S);?
     Route: 048
  7. BUSPIRONE HCL [Concomitant]
     Active Substance: BUSPIRONE HYDROCHLORIDE
  8. APLENZIN [Concomitant]
     Active Substance: BUPROPION HYDROBROMIDE
  9. GLIPIZIDE ER [Concomitant]
     Active Substance: GLIPIZIDE
  10. ROSUVASTATIN. [Concomitant]
     Active Substance: ROSUVASTATIN
  11. PROBIOTIC [Concomitant]
     Active Substance: PROBIOTICS NOS
  12. CLARITIN [Concomitant]
     Active Substance: LORATADINE

REACTIONS (2)
  - Drug ineffective [None]
  - Nervousness [None]

NARRATIVE: CASE EVENT DATE: 20210824
